FAERS Safety Report 7353959-7 (Version None)
Quarter: 2011Q1

REPORT INFORMATION
  Report Type: 
  Country: None (occurrence: None)
  Receive Date: 20110315
  Receipt Date: 20110301
  Transmission Date: 20110831
  Serious: Yes (Other)
  Sender: FDA-Public Use
  Company Number: PHHY2010BR61729

PATIENT
  Sex: Female

DRUGS (1)
  1. DIOVAN AMLO [Suspect]
     Dosage: 300/5 MG

REACTIONS (5)
  - BLOOD PRESSURE INADEQUATELY CONTROLLED [None]
  - SWELLING [None]
  - WEIGHT INCREASED [None]
  - HYPERTENSION [None]
  - OEDEMA PERIPHERAL [None]
